FAERS Safety Report 9617998 (Version 2)
Quarter: 2013Q4

REPORT INFORMATION
  Report Type: Report from Study
  Country: US (occurrence: US)
  Receive Date: 20131011
  Receipt Date: 20131111
  Transmission Date: 20140711
  Serious: Yes (Life-Threatening, Hospitalization)
  Sender: FDA-Public Use
  Company Number: US-ACTELION-A-US2013-89549

PATIENT
  Age: 68 Year
  Sex: Female

DRUGS (3)
  1. TRACLEER [Suspect]
     Indication: COR PULMONALE CHRONIC
     Dosage: UNK
     Route: 048
  2. COUMADIN [Concomitant]
  3. ADCIRCA [Concomitant]

REACTIONS (5)
  - Thrombosis [Recovered/Resolved]
  - Pleural effusion [Unknown]
  - Dyspnoea exertional [Unknown]
  - Dyspnoea [Unknown]
  - Urinary tract infection [Unknown]
